FAERS Safety Report 7819615-3 (Version None)
Quarter: 2011Q4

REPORT INFORMATION
  Report Type: 
  Country: None (occurrence: None)
  Receive Date: 20111018
  Receipt Date: 20111018
  Transmission Date: 20120403
  Serious: Yes (Other)
  Sender: FDA-Public Use
  Company Number: None

PATIENT
  Age: 58 Year
  Sex: Female
  Weight: 65.77 kg

DRUGS (1)
  1. ALENDRONATE SODIUM [Suspect]
     Indication: BONE LOSS
     Dosage: 70 MG
     Dates: start: 20090210, end: 20110430

REACTIONS (4)
  - MUSCULOSKELETAL PAIN [None]
  - GAIT DISTURBANCE [None]
  - ARTHRALGIA [None]
  - PAIN IN EXTREMITY [None]
